FAERS Safety Report 4804842-X (Version None)
Quarter: 2005Q4

REPORT INFORMATION
  Report Type: 
  Country: None (occurrence: None)
  Receive Date: 20051020
  Receipt Date: 20050831
  Transmission Date: 20060501
  Serious: Yes (Disabling, Other)
  Sender: FDA-Public Use
  Company Number: PHBS2005JP12890

PATIENT
  Age: 86 Year
  Sex: Male
  Weight: 44 kg

DRUGS (6)
  1. CEROCRAL [Concomitant]
     Indication: CEREBRAL INFARCTION
     Dosage: 40 MG, UNK
     Route: 048
     Dates: start: 20041116, end: 20050811
  2. PROTECADIN [Concomitant]
     Indication: GASTRITIS
     Dosage: 10 MG, UNK
     Route: 048
     Dates: start: 19950406
  3. AMLODIPINE BESYLATE [Concomitant]
     Indication: HYPERTENSION
     Dosage: 5 MG, UNK
     Route: 048
     Dates: start: 19910319
  4. DIOVAN [Suspect]
     Indication: HYPERTENSION
     Dosage: 80 MG, QD
     Route: 048
     Dates: start: 20030814, end: 20050615
  5. DIOVAN [Suspect]
     Dosage: 160 MG, QD
     Route: 048
     Dates: start: 20050616, end: 20050811
  6. PANALDINE [Concomitant]
     Indication: CEREBRAL INFARCTION
     Dosage: 100 MG, UNK
     Route: 048
     Dates: start: 19950406

REACTIONS (5)
  - BLOOD CREATININE INCREASED [None]
  - BLOOD UREA INCREASED [None]
  - DEHYDRATION [None]
  - HYPOTENSION [None]
  - RENAL IMPAIRMENT [None]
